FAERS Safety Report 14924378 (Version 2)
Quarter: 2018Q2

REPORT INFORMATION
  Report Type: Spontaneous
  Country: DE (occurrence: DE)
  Receive Date: 20180522
  Receipt Date: 20180625
  Transmission Date: 20180711
  Serious: Yes (Hospitalization)
  Sender: FDA-Public Use
  Company Number: DE-GLAXOSMITHKLINE-DE2018085951

PATIENT
  Age: 60 Year
  Sex: Male
  Weight: 72 kg

DRUGS (4)
  1. NEBIVOLOL. [Concomitant]
     Active Substance: NEBIVOLOL
     Indication: CORONARY ARTERY DISEASE
     Dosage: 5 MG, UNK
     Route: 048
  2. RAMIPRIL. [Concomitant]
     Active Substance: RAMIPRIL
     Indication: HYPERTENSION
     Dosage: 5 MG, UNK
     Route: 048
  3. CEFUROXIM AXETIL [Suspect]
     Active Substance: CEFUROXIME AXETIL
     Indication: PNEUMONIA
     Dosage: 500 MG, UNK
     Route: 048
  4. SIMVASTATIN. [Concomitant]
     Active Substance: SIMVASTATIN
     Indication: HYPERCHOLESTEROLAEMIA
     Dosage: 40 MG, UNK
     Route: 048

REACTIONS (4)
  - Livedo reticularis [Recovered/Resolved]
  - Cutaneous vasculitis [Recovered/Resolved]
  - Purpura [Recovered/Resolved]
  - Lividity [Recovered/Resolved]

NARRATIVE: CASE EVENT DATE: 20180114
